FAERS Safety Report 5880538-0 (Version None)
Quarter: 2008Q3

REPORT INFORMATION
  Report Type: 
  Country: None (occurrence: None)
  Receive Date: 20080912
  Receipt Date: 20080602
  Transmission Date: 20090109
  Serious: No
  Sender: FDA-Public Use
  Company Number: US-ABBOTT-08P-163-0454471-00

PATIENT
  Sex: Female
  Weight: 49.486 kg

DRUGS (6)
  1. HUMIRA [Suspect]
     Indication: RHEUMATOID ARTHRITIS
     Route: 058
     Dates: start: 20070415
  2. METHOTREXATE [Concomitant]
     Indication: RHEUMATOID ARTHRITIS
     Route: 050
  3. PREDNISONE TAB [Concomitant]
     Indication: RHEUMATOID ARTHRITIS
     Route: 048
     Dates: end: 20070101
  4. RISEDRONATE SODIUM [Concomitant]
     Indication: BONE DISORDER
     Dosage: NOT REPORTED
  5. IBUPROFEN [Concomitant]
     Indication: PAIN
     Route: 048
  6. PROPACET 100 [Concomitant]
     Indication: PAIN
     Route: 048

REACTIONS (4)
  - DERMATITIS [None]
  - DRY SKIN [None]
  - ERYTHEMA [None]
  - PRURITUS [None]
